FAERS Safety Report 4456155-6 (Version None)
Quarter: 2004Q3

REPORT INFORMATION
  Report Type: 
  Country: None (occurrence: None)
  Receive Date: 20040920
  Receipt Date: 20040907
  Transmission Date: 20050211
  Serious: Yes (Hospitalization)
  Sender: FDA-Public Use
  Company Number: USA-2004-0016704

PATIENT
  Age: 67 Year
  Sex: Female

DRUGS (6)
  1. MS CONTIN [Suspect]
     Indication: PAIN
     Dosage: MG
     Dates: end: 20040722
  2. AMANTADINE (AMANTADINE ) [Suspect]
     Indication: PAIN
     Dosage: 200 MG, DAILY, ORAL
     Route: 048
     Dates: start: 20040722, end: 20040722
  3. LOVAN (FLUOXETINE HYDROCHLORIDE) [Suspect]
     Indication: DEPRESSION
     Dosage: 40 MG, DAILY, ORAL
     Route: 048
     Dates: start: 20040415, end: 20040817
  4. CALTRATE (CALCIUM CARBONATE) [Concomitant]
  5. ALPRAZOLAM [Concomitant]
  6. LOSEC (OMEPRAZOLE) [Concomitant]

REACTIONS (9)
  - AGITATION [None]
  - CONFUSIONAL STATE [None]
  - HALLUCINATION [None]
  - HYPERREFLEXIA [None]
  - HYPERTENSION [None]
  - MOBILITY DECREASED [None]
  - PYREXIA [None]
  - SEROTONIN SYNDROME [None]
  - TREMOR [None]
